FAERS Safety Report 10246456 (Version 1)
Quarter: 2014Q2

REPORT INFORMATION
  Report Type: Spontaneous
  Country: US (occurrence: US)
  Receive Date: 20140619
  Receipt Date: 20140619
  Transmission Date: 20141212
  Serious: No
  Sender: FDA-Public Use
  Company Number: US-PFIZER INC-2014168367

PATIENT
  Age: 38 Year
  Sex: Female
  Weight: 56.69 kg

DRUGS (2)
  1. CELEBREX [Suspect]
     Indication: CARPAL TUNNEL SYNDROME
     Dosage: 200 MG, 2X/DAY
     Route: 048
     Dates: start: 20020513, end: 20020520
  2. CELEBREX [Suspect]
     Indication: INFLAMMATION

REACTIONS (1)
  - Flatulence [Unknown]
